FAERS Safety Report 8994874 (Version 1)
Quarter: 2013Q1

REPORT INFORMATION
  Report Type: Spontaneous
  Country: US (occurrence: US)
  Receive Date: 20130102
  Receipt Date: 20130102
  Transmission Date: 20140127
  Serious: No
  Sender: FDA-Public Use
  Company Number: US-AMGEN-USASP2012078197

PATIENT
  Age: 66 Year
  Sex: Male

DRUGS (1)
  1. ENBREL [Suspect]
     Indication: RHEUMATOID ARTHRITIS
     Dosage: 50 MG, WEEKLY
     Dates: start: 20121025

REACTIONS (7)
  - Epistaxis [Not Recovered/Not Resolved]
  - Ear congestion [Not Recovered/Not Resolved]
  - Toothache [Not Recovered/Not Resolved]
  - Pain in jaw [Not Recovered/Not Resolved]
  - Joint stiffness [Not Recovered/Not Resolved]
  - Stomatitis [Not Recovered/Not Resolved]
  - Sinusitis [Not Recovered/Not Resolved]
